FAERS Safety Report 4955556-7 (Version None)
Quarter: 2006Q1

REPORT INFORMATION
  Report Type: 
  Country: None (occurrence: None)
  Receive Date: 20060328
  Receipt Date: 20030605
  Transmission Date: 20060701
  Serious: Yes (Hospitalization)
  Sender: FDA-Public Use
  Company Number: US-MERCK-0306USA00823

PATIENT
  Age: 54 Year
  Sex: Female
  Weight: 76 kg

DRUGS (2)
  1. VIOXX [Suspect]
     Route: 048
     Dates: start: 20000101, end: 20020101
  2. VIOXX [Suspect]
     Route: 048
     Dates: start: 20000101, end: 20020101

REACTIONS (37)
  - ACROCHORDON [None]
  - ANAL SPHINCTER ATONY [None]
  - ARTHRALGIA [None]
  - ARTHROPATHY [None]
  - ATRIOVENTRICULAR BLOCK FIRST DEGREE [None]
  - BACK PAIN [None]
  - BRONCHITIS [None]
  - CANDIDIASIS [None]
  - CHEST PAIN [None]
  - DEEP VEIN THROMBOSIS [None]
  - ELECTROCARDIOGRAM ST-T CHANGE [None]
  - FAECAL INCONTINENCE [None]
  - GASTROOESOPHAGEAL REFLUX DISEASE [None]
  - HYPERGLYCAEMIA [None]
  - HYPERKERATOSIS [None]
  - INJURY [None]
  - JOINT SWELLING [None]
  - KNEE ARTHROPLASTY [None]
  - LYME DISEASE [None]
  - MITRAL VALVE INCOMPETENCE [None]
  - MUSCLE SPASMS [None]
  - MUSCULAR WEAKNESS [None]
  - MYALGIA [None]
  - OBESITY [None]
  - OEDEMA PERIPHERAL [None]
  - PARAESTHESIA [None]
  - PEPTIC ULCER [None]
  - REPRODUCTIVE TRACT DISORDER [None]
  - RHINITIS ALLERGIC [None]
  - SINUSITIS [None]
  - TRANSIENT ISCHAEMIC ATTACK [None]
  - TRICUSPID VALVE INCOMPETENCE [None]
  - URETERAL DISORDER [None]
  - URINARY INCONTINENCE [None]
  - URINARY TRACT INFECTION [None]
  - VENTRICULAR HYPERTROPHY [None]
  - WEIGHT INCREASED [None]
